FAERS Safety Report 12749840 (Version 1)
Quarter: 2016Q3

REPORT INFORMATION
  Report Type: Spontaneous
  Country: US (occurrence: US)
  Receive Date: 20160915
  Receipt Date: 20160915
  Transmission Date: 20161109
  Serious: Yes (Life-Threatening, Hospitalization, Disabling)
  Sender: FDA-Public Use
  Company Number: None

PATIENT
  Age: 53 Year
  Sex: Female
  Weight: 62.55 kg

DRUGS (5)
  1. AREDS2 [Concomitant]
  2. METFORMIN [Concomitant]
     Active Substance: METFORMIN HYDROCHLORIDE
  3. VITAMIN D3 [Concomitant]
     Active Substance: CHOLECALCIFEROL
  4. LEVOXYL [Concomitant]
     Active Substance: LEVOTHYROXINE SODIUM
  5. LEVAQUIN [Suspect]
     Active Substance: LEVOFLOXACIN
     Indication: PNEUMONIA
     Route: 048
     Dates: start: 20080724, end: 20080804

REACTIONS (1)
  - Intracranial aneurysm [None]

NARRATIVE: CASE EVENT DATE: 20121018
